FAERS Safety Report 20670118 (Version 19)
Quarter: 2023Q4

REPORT INFORMATION
  Report Type: Report from Study
  Country: US (occurrence: US)
  Receive Date: 20220404
  Receipt Date: 20231130
  Transmission Date: 20240110
  Serious: Yes (Other)
  Sender: FDA-Public Use
  Company Number: US-TAKEDA-2022TUS021851

PATIENT
  Age: 13 Year
  Sex: Male

DRUGS (3)
  1. VONICOG ALFA [Suspect]
     Active Substance: VONICOG ALFA
     Indication: Haemorrhage
     Dosage: 3520 INTERNATIONAL UNIT, Q12H
     Route: 042
  2. VONICOG ALFA [Suspect]
     Active Substance: VONICOG ALFA
     Indication: Injury
     Dosage: 3520 INTERNATIONAL UNIT
     Route: 042
  3. VONICOG ALFA [Suspect]
     Active Substance: VONICOG ALFA
     Dosage: 3520 INTERNATIONAL UNIT
     Route: 065

REACTIONS (9)
  - Post procedural haemorrhage [Not Recovered/Not Resolved]
  - Cerebral haemorrhage [Unknown]
  - Epistaxis [Recovered/Resolved]
  - Haemarthrosis [Recovered/Resolved]
  - Eye haemorrhage [Recovered/Resolved]
  - Pharyngeal haemorrhage [Unknown]
  - Head injury [Unknown]
  - Face injury [Unknown]
  - Extra dose administered [Unknown]

NARRATIVE: CASE EVENT DATE: 20220329
